FAERS Safety Report 23094974 (Version 1)
Quarter: 2023Q4

REPORT INFORMATION
  Report Type: Spontaneous
  Country: US (occurrence: US)
  Receive Date: 20231023
  Receipt Date: 20231023
  Transmission Date: 20240110
  Serious: Yes (Hospitalization, Other)
  Sender: FDA-Public Use
  Company Number: US-drreddys-SPO/USA/23/0180253

PATIENT
  Age: 63 Year
  Sex: Male

DRUGS (2)
  1. DEXAMETHASONE [Suspect]
     Active Substance: DEXAMETHASONE
     Indication: COVID-19
     Dosage: UPTO 80 MG
  2. DEXAMETHASONE [Suspect]
     Active Substance: DEXAMETHASONE
     Dosage: PROLONG TAPER

REACTIONS (2)
  - Cryptococcosis [Recovering/Resolving]
  - Vertebrobasilar stroke [Recovering/Resolving]
